FAERS Safety Report 25861741 (Version 1)
Quarter: 2025Q3

REPORT INFORMATION
  Report Type: Spontaneous
  Country: JP (occurrence: JP)
  Receive Date: 20250930
  Receipt Date: 20250930
  Transmission Date: 20251021
  Serious: Yes (Hospitalization, Other)
  Sender: AZURITY PHARMACEUTICALS
  Company Number: JP-AZURITY PHARMACEUTICALS, INC.-AZR202509-002921

PATIENT
  Age: 4 Year
  Sex: Male

DRUGS (5)
  1. VANCOMYCIN HYDROCHLORIDE [Suspect]
     Active Substance: VANCOMYCIN HYDROCHLORIDE
     Indication: Lymphadenitis bacterial
     Route: 042
  2. PIPERACILLIN SODIUM\TAZOBACTAM SODIUM [Concomitant]
     Active Substance: PIPERACILLIN SODIUM\TAZOBACTAM SODIUM
     Indication: Lymphadenitis bacterial
     Dosage: 400 MILLIGRAM/KILOGRAM, DAILY
     Route: 042
  3. CEFOTAXIME [Concomitant]
     Active Substance: CEFOTAXIME SODIUM
     Indication: Lymphadenitis bacterial
     Dosage: 100 MILLIGRAM/KILOGRAM, DAILY
     Route: 042
  4. CEFAZOLIN [Concomitant]
     Active Substance: CEFAZOLIN
     Indication: Lymphadenitis bacterial
     Dosage: 150 MILLIGRAM/KILOGRAM, DAILY
     Route: 042
  5. MEROPENEM [Concomitant]
     Active Substance: MEROPENEM
     Indication: Lymphadenitis bacterial
     Dosage: 20 MILLIGRAM/KILOGRAM, DAILY
     Route: 042

REACTIONS (2)
  - Pancytopenia [Recovered/Resolved]
  - Hepatic enzyme increased [Recovered/Resolved]
